FAERS Safety Report 11225686 (Version 2)
Quarter: 2015Q3

REPORT INFORMATION
  Report Type: Spontaneous
  Country: FR (occurrence: FR)
  Receive Date: 20150629
  Receipt Date: 20150720
  Transmission Date: 20151125
  Serious: Yes (Hospitalization)
  Sender: FDA-Public Use
  Company Number: FR-TEVA-572744ISR

PATIENT
  Age: 53 Year
  Sex: Male

DRUGS (6)
  1. TRISENOX [Suspect]
     Active Substance: ARSENIC TRIOXIDE
     Dosage: .15 MG/KG DAILY;
     Route: 042
     Dates: start: 20150528, end: 20150528
  2. TRISENOX [Suspect]
     Active Substance: ARSENIC TRIOXIDE
     Dosage: .15 MG/KG DAILY;
     Route: 041
     Dates: start: 20150524, end: 20150526
  3. ALL-TRANS-RETINOIC ACID NOS [Concomitant]
     Dates: start: 20150601
  4. ALL-TRANS-RETINOIC ACID NOS [Concomitant]
     Dates: start: 20150524, end: 20150526
  5. TRISENOX [Suspect]
     Active Substance: ARSENIC TRIOXIDE
     Indication: ACUTE PROMYELOCYTIC LEUKAEMIA
     Dosage: .15 MG/KG DAILY;
     Route: 041
     Dates: start: 20150518, end: 20150521
  6. ALL-TRANS-RETINOIC ACID NOS [Concomitant]
     Indication: ACUTE PROMYELOCYTIC LEUKAEMIA
     Dates: start: 20150513, end: 20150521

REACTIONS (8)
  - VIIth nerve paralysis [Recovered/Resolved]
  - Hypoaesthesia [Unknown]
  - Hypoaesthesia oral [Unknown]
  - Abdominal rigidity [Recovering/Resolving]
  - Paraesthesia [Recovered/Resolved]
  - Paraesthesia oral [Unknown]
  - Paraesthesia [Unknown]
  - Eyelid ptosis [Recovering/Resolving]

NARRATIVE: CASE EVENT DATE: 20150521
